FAERS Safety Report 17024004 (Version 1)
Quarter: 2019Q4

REPORT INFORMATION
  Report Type: Spontaneous
  Country: FR (occurrence: FR)
  Receive Date: 20191113
  Receipt Date: 20191113
  Transmission Date: 20200122
  Serious: Yes (Other)
  Sender: FDA-Public Use
  Company Number: FR-SUN PHARMACEUTICAL INDUSTRIES LTD-2019RR-227138

PATIENT
  Age: 48 Year
  Sex: Male
  Weight: 77.5 kg

DRUGS (3)
  1. TERCIAN 25 MG, COMPRIME PELLICULE SECABLE [Concomitant]
     Active Substance: CYAMEMAZINE
     Indication: DEPRESSION
     Dosage: ()
     Route: 048
  2. CITALOPRAM [Suspect]
     Active Substance: CITALOPRAM HYDROBROMIDE
     Indication: DEPRESSION
     Dosage: 40 MILLIGRAM, DAILY
     Route: 048
  3. RIFADINE 300 MG, GELULE [Interacting]
     Active Substance: RIFAMPIN
     Indication: NECROTISING FASCIITIS
     Dosage: 1200 MILLIGRAM, DAILY
     Route: 048
     Dates: start: 20190523, end: 20190823

REACTIONS (2)
  - Drug interaction [Recovered/Resolved]
  - Depression [Recovering/Resolving]

NARRATIVE: CASE EVENT DATE: 201908
